FAERS Safety Report 7448097-9 (Version None)
Quarter: 2011Q2

REPORT INFORMATION
  Report Type: 
  Country: None (occurrence: None)
  Receive Date: 20110429
  Receipt Date: 20100426
  Transmission Date: 20111010
  Serious: No
  Sender: FDA-Public Use
  Company Number: US-ASTRAZENECA-2010SE01799

PATIENT
  Age: 87 Year
  Sex: Female
  Weight: 72.6 kg

DRUGS (6)
  1. VITAMINS [Concomitant]
  2. CASTOR OIL [Concomitant]
  3. CLONIDINE [Concomitant]
     Indication: HYPERTENSION
  4. ROLAIDS [Concomitant]
  5. NEXIUM [Suspect]
     Indication: GASTROOESOPHAGEAL REFLUX DISEASE
     Route: 048
     Dates: start: 20100424
  6. DIAZEPAM [Concomitant]
     Indication: NERVOUSNESS

REACTIONS (6)
  - ABDOMINAL DISTENSION [None]
  - RASH [None]
  - CHEST DISCOMFORT [None]
  - DYSPHONIA [None]
  - THROAT TIGHTNESS [None]
  - HEART RATE INCREASED [None]
